FAERS Safety Report 5778708-5 (Version None)
Quarter: 2008Q2

REPORT INFORMATION
  Report Type: 
  Country: None (occurrence: None)
  Receive Date: 20080618
  Receipt Date: 20080618
  Transmission Date: 20081010
  Serious: Yes (Other)
  Sender: FDA-Public Use
  Company Number: None

PATIENT
  Age: 41 Year
  Sex: Male
  Weight: 114.3065 kg

DRUGS (1)
  1. DIGITEK 250 MCG ACTAVIS [Suspect]
     Indication: CARDIAC FAILURE
     Dosage: 250MCG 1 TIME DAY
     Dates: start: 20020910, end: 20080516

REACTIONS (5)
  - FEELING ABNORMAL [None]
  - HYPERSOMNIA [None]
  - MENTAL IMPAIRMENT [None]
  - PHARMACEUTICAL PRODUCT COMPLAINT [None]
  - VOMITING [None]
